FAERS Safety Report 17433366 (Version 1)
Quarter: 2020Q1

REPORT INFORMATION
  Report Type: Spontaneous
  Country: CN (occurrence: CN)
  Receive Date: 20200219
  Receipt Date: 20200219
  Transmission Date: 20200409
  Serious: Yes (Death, Hospitalization)
  Sender: FDA-Public Use
  Company Number: CN-SUN PHARMACEUTICAL INDUSTRIES LTD-2020R1-236975

PATIENT
  Age: 20 Month
  Sex: Male

DRUGS (2)
  1. CEPHALOSPORIN [Concomitant]
     Active Substance: UNSPECIFIED INGREDIENT
     Indication: INFLAMMATORY PAIN
     Dosage: UNK
     Route: 065
  2. IBUPROFEN. [Suspect]
     Active Substance: IBUPROFEN
     Indication: PYREXIA
     Dosage: UNK
     Route: 048

REACTIONS (7)
  - Pupils unequal [Fatal]
  - Condition aggravated [Fatal]
  - Disseminated intravascular coagulation [Unknown]
  - Altered state of consciousness [Fatal]
  - Epstein-Barr virus infection [Unknown]
  - Dyspnoea [Fatal]
  - Reye^s syndrome [Unknown]
